FAERS Safety Report 12737328 (Version 2)
Quarter: 2016Q3

REPORT INFORMATION
  Report Type: Spontaneous
  Country: US (occurrence: US)
  Receive Date: 20160912
  Receipt Date: 20160926
  Transmission Date: 20161109
  Serious: No
  Sender: FDA-Public Use
  Company Number: US-MEDA-2016080114

PATIENT
  Sex: Female

DRUGS (1)
  1. SULFANILAMIDE [Suspect]
     Active Substance: SULFANILAMIDE
     Indication: CYSTITIS

REACTIONS (2)
  - Pyrexia [Unknown]
  - Drug hypersensitivity [Unknown]
